FAERS Safety Report 17591051 (Version 1)
Quarter: 2020Q1

REPORT INFORMATION
  Report Type: Spontaneous
  Country: US (occurrence: US)
  Receive Date: 20200325
  Receipt Date: 20200325
  Transmission Date: 20200409
  Serious: Yes (Life-Threatening)
  Sender: FDA-Public Use
  Company Number: None

PATIENT
  Age: 70 Year
  Sex: Male
  Weight: 68.95 kg

DRUGS (2)
  1. DOXYCYCLINE (DOXYCYCLINE HYCLATE 100MG CAP) [Suspect]
     Active Substance: DOXYCYCLINE HYCLATE
     Indication: URINARY TRACT INFECTION
     Route: 048
     Dates: start: 20180721, end: 20180722
  2. DOXYCYCLINE (DOXYCYCLINE HYCLATE 100MG CAP) [Suspect]
     Active Substance: DOXYCYCLINE HYCLATE
     Indication: SKIN BACTERIAL INFECTION
     Route: 048
     Dates: start: 20180721, end: 20180722

REACTIONS (5)
  - Chills [None]
  - Stevens-Johnson syndrome [None]
  - Rash [None]
  - Tachycardia [None]
  - Skin exfoliation [None]

NARRATIVE: CASE EVENT DATE: 20180721
